FAERS Safety Report 11884705 (Version 1)
Quarter: 2015Q4

REPORT INFORMATION
  Report Type: Spontaneous
  Country: US (occurrence: None)
  Receive Date: 20151231
  Receipt Date: 20151231
  Transmission Date: 20160305
  Serious: No
  Sender: FDA-Public Use
  Company Number: None

PATIENT
  Age: 64 Year
  Sex: Female

DRUGS (1)
  1. AVONEX [Suspect]
     Active Substance: INTERFERON BETA-1A
     Dosage: STRENGTH: 30MCG  DOSE FORM: INJECTABLE  FREQUENCY: 30MCG QWK
     Route: 030
     Dates: start: 200907

REACTIONS (1)
  - Hypertension [None]

NARRATIVE: CASE EVENT DATE: 20151208
